FAERS Safety Report 8425405-3 (Version None)
Quarter: 2012Q2

REPORT INFORMATION
  Report Type: 
  Country: None (occurrence: None)
  Receive Date: 20120611
  Receipt Date: 20120601
  Transmission Date: 20120825
  Serious: No
  Sender: FDA-Public Use
  Company Number: US-BAYER-2012-055997

PATIENT
  Age: 19 Year
  Sex: Male
  Weight: 79 kg

DRUGS (1)
  1. ALEVE (CAPLET) [Suspect]
     Dosage: 1100 MG, BID
     Route: 048
     Dates: start: 20120601

REACTIONS (5)
  - PSYCHOMOTOR HYPERACTIVITY [None]
  - DIZZINESS [None]
  - FEELING HOT [None]
  - FEELING ABNORMAL [None]
  - HEADACHE [None]
